FAERS Safety Report 17581559 (Version 1)
Quarter: 2020Q1

REPORT INFORMATION
  Report Type: Spontaneous
  Country: US (occurrence: US)
  Receive Date: 20200318
  Receipt Date: 20200318
  Transmission Date: 20200409
  Serious: No
  Sender: FDA-Public Use
  Company Number: None

PATIENT
  Age: 58 Year
  Sex: Female
  Weight: 70.49 kg

DRUGS (6)
  1. ALOXI [Suspect]
     Active Substance: PALONOSETRON HYDROCHLORIDE
     Dates: end: 20200212
  2. OLANZAPINE. [Suspect]
     Active Substance: OLANZAPINE
     Dates: end: 20200215
  3. DEXAMETHASONE. [Suspect]
     Active Substance: DEXAMETHASONE
     Dates: end: 20200215
  4. FOSAPREPITANT DIMEGLUMINE. [Suspect]
     Active Substance: FOSAPREPITANT DIMEGLUMINE
     Dates: end: 20200212
  5. DOXORUBICIN [Concomitant]
     Active Substance: DOXORUBICIN
  6. CYCLOPHOSPHAMIDE. [Concomitant]
     Active Substance: CYCLOPHOSPHAMIDE

REACTIONS (3)
  - Sinusitis [None]
  - Sinus pain [None]
  - Tenderness [None]

NARRATIVE: CASE EVENT DATE: 20200219
